FAERS Safety Report 5514866-5 (Version None)
Quarter: 2007Q4

REPORT INFORMATION
  Report Type: 
  Country: None (occurrence: None)
  Receive Date: 20071113
  Receipt Date: 20070314
  Transmission Date: 20080405
  Serious: No
  Sender: FDA-Public Use
  Company Number: A0563175A

PATIENT
  Age: 59 Year
  Sex: Female

DRUGS (7)
  1. COREG [Suspect]
     Dosage: 6.25MG TWICE PER DAY
     Route: 048
     Dates: start: 20020101
  2. DIOVAN [Concomitant]
  3. XANAX [Concomitant]
  4. MULTI-VITAMIN [Concomitant]
  5. VITAMIN E [Concomitant]
  6. ASPIRIN [Concomitant]
  7. AMIODARONE HCL [Concomitant]

REACTIONS (14)
  - ANXIETY [None]
  - ASTHENIA [None]
  - CHILLS [None]
  - DIZZINESS [None]
  - FATIGUE [None]
  - HEAD DISCOMFORT [None]
  - HEADACHE [None]
  - HEART RATE IRREGULAR [None]
  - INSOMNIA [None]
  - NAUSEA [None]
  - NERVOUSNESS [None]
  - PERIPHERAL COLDNESS [None]
  - TONGUE ERUPTION [None]
  - VISION BLURRED [None]
